FAERS Safety Report 9894303 (Version 3)
Quarter: 2014Q1

REPORT INFORMATION
  Report Type: Spontaneous
  Country: JP (occurrence: JP)
  Receive Date: 20140213
  Receipt Date: 20140307
  Transmission Date: 20141002
  Serious: Yes (Other)
  Sender: FDA-Public Use
  Company Number: JP-GLAXOSMITHKLINE-B0968945A

PATIENT
  Age: 65 Year
  Sex: Male

DRUGS (7)
  1. OLMETEC [Suspect]
     Indication: HYPERTENSION
     Dosage: 40MG PER DAY
     Route: 065
     Dates: start: 20131231
  2. CRAVIT [Suspect]
     Indication: PNEUMONIA
     Dosage: 500MG PER DAY
     Route: 065
     Dates: start: 20140105, end: 20140111
  3. ARTIST [Suspect]
     Indication: HYPERTENSION
     Dosage: 10MG PER DAY
     Route: 065
  4. AMLODIPINE [Suspect]
     Indication: PRODUCT USED FOR UNKNOWN INDICATION
     Route: 065
  5. ZOSYN [Concomitant]
  6. URSODEOXYCHOLIC ACID [Concomitant]
  7. REBAMIPIDE [Concomitant]

REACTIONS (5)
  - Red blood cell count decreased [Recovered/Resolved]
  - Blood lactate dehydrogenase increased [Recovered/Resolved]
  - Haemoglobin decreased [Recovered/Resolved]
  - Haematocrit decreased [Recovered/Resolved]
  - Pneumonia [Recovered/Resolved]
